FAERS Safety Report 14669119 (Version 1)
Quarter: 2018Q1

REPORT INFORMATION
  Report Type: Spontaneous
  Country: US (occurrence: US)
  Receive Date: 20180322
  Receipt Date: 20180322
  Transmission Date: 20180509
  Serious: Yes (Hospitalization)
  Sender: FDA-Public Use
  Company Number: US-TEVA-2018-US-872974

PATIENT
  Age: 61 Year
  Sex: Male

DRUGS (3)
  1. OPDIVO [Suspect]
     Active Substance: NIVOLUMAB
     Indication: MALIGNANT MELANOMA
     Route: 065
  2. YERVOY [Suspect]
     Active Substance: IPILIMUMAB
     Indication: MALIGNANT MELANOMA
     Route: 065
  3. PREDNISONE. [Suspect]
     Active Substance: PREDNISONE
     Indication: RASH MACULO-PAPULAR
     Dosage: HIGH DOSE; STARTED THREE DAYS PRIOR TO PRESENTATION
     Route: 065

REACTIONS (3)
  - Diabetic ketoacidosis [Unknown]
  - Diabetes mellitus [Unknown]
  - Rash maculo-papular [Unknown]
